FAERS Safety Report 4588779-X (Version None)
Quarter: 2005Q1

REPORT INFORMATION
  Report Type: 
  Country: None (occurrence: None)
  Receive Date: 20050216
  Receipt Date: 20050128
  Transmission Date: 20050727
  Serious: Yes (Death)
  Sender: FDA-Public Use
  Company Number: USA041081281

PATIENT
  Age: 55 Year
  Sex: Female
  Weight: 105 kg

DRUGS (5)
  1. ZYPREXA [Suspect]
     Indication: BIPOLAR DISORDER
     Dosage: 30 MG
     Dates: start: 19981216
  2. KLONOPIN [Concomitant]
  3. NEURONTIN (GABAPENTIN PFIZER) [Concomitant]
  4. DESYREL [Concomitant]
  5. COGENTIN [Concomitant]

REACTIONS (3)
  - PNEUMONIA [None]
  - PRESCRIBED OVERDOSE [None]
  - SEDATION [None]
